FAERS Safety Report 20024227 (Version 2)
Quarter: 2021Q4

REPORT INFORMATION
  Report Type: Report from Study
  Country: US (occurrence: US)
  Receive Date: 20211102
  Receipt Date: 20211210
  Transmission Date: 20220303
  Serious: No
  Sender: FDA-Public Use
  Company Number: US-NOVARTISTESTPH-NVSC2021US250164

PATIENT
  Age: 72 Year
  Sex: Female
  Weight: 59.2 kg

DRUGS (10)
  1. CLOFAZIMINE [Suspect]
     Active Substance: CLOFAZIMINE
     Indication: Lung disorder
     Dosage: 100 MG
     Route: 048
     Dates: start: 20190710, end: 20211202
  2. CLOFAZIMINE [Suspect]
     Active Substance: CLOFAZIMINE
     Indication: Abscess
  3. AZITHROMYCIN [Concomitant]
     Active Substance: AZITHROMYCIN
     Indication: Lung disorder
     Dosage: 500 MG
     Route: 065
     Dates: start: 20190710
  4. AZITHROMYCIN [Concomitant]
     Active Substance: AZITHROMYCIN
     Indication: Abscess
     Dosage: 500 MG, QD
     Route: 065
     Dates: start: 20190810, end: 20211202
  5. ETHAMBUTOL [Concomitant]
     Active Substance: ETHAMBUTOL HYDROCHLORIDE
     Indication: Lung disorder
     Dosage: 800 MG
     Route: 065
     Dates: start: 20190710
  6. ETHAMBUTOL [Concomitant]
     Active Substance: ETHAMBUTOL HYDROCHLORIDE
     Indication: Abscess
     Dosage: 800 MG, QD
     Route: 065
     Dates: start: 20190810, end: 20211202
  7. AMIKACIN [Concomitant]
     Active Substance: AMIKACIN
     Indication: Lung disorder
     Dosage: 875 MG, TIW
     Route: 042
     Dates: start: 20211025
  8. AMIKACIN [Concomitant]
     Active Substance: AMIKACIN
     Indication: Abscess
  9. OMADACYCLINE [Concomitant]
     Active Substance: OMADACYCLINE
     Indication: Lung disorder
     Dosage: 300 MG
     Route: 065
     Dates: start: 20211001, end: 20211022
  10. OMADACYCLINE [Concomitant]
     Active Substance: OMADACYCLINE
     Indication: Abscess

REACTIONS (1)
  - AST/ALT ratio abnormal [Not Recovered/Not Resolved]

NARRATIVE: CASE EVENT DATE: 20211021
